FAERS Safety Report 5279108-7 (Version None)
Quarter: 2007Q1

REPORT INFORMATION
  Report Type: 
  Country: None (occurrence: None)
  Receive Date: 20070321
  Receipt Date: 20070309
  Transmission Date: 20070707
  Serious: Yes (Other)
  Sender: FDA-Public Use
  Company Number: 2007-00046

PATIENT
  Age: 60 Year
  Sex: Male

DRUGS (17)
  1. VELCADE [Suspect]
     Indication: MULTIPLE MYELOMA
     Dosage: 1.90 MG
     Dates: start: 20061212, end: 20061215
  2. ALBUMIN (HUMAN) [Suspect]
     Indication: DRUG USE FOR UNKNOWN INDICATION
     Dates: start: 20061219, end: 20061219
  3. DEXAMETHASONE [Concomitant]
  4. MUCOSTA (REBAMIPIDE) [Concomitant]
  5. ZANTAC [Concomitant]
  6. BAKTAR (SULFAMETHOXAZOLE, TRIMETHOPRIM) [Concomitant]
  7. DIFLUCAN [Concomitant]
  8. BIOFERMIN R (STREPTOCOCCUS FAECALIS) [Concomitant]
  9. ZOVIRAX [Concomitant]
  10. NASEA (RAMOSETRON HYDROCHLORIDE) [Concomitant]
  11. LASIX [Concomitant]
  12. NOVOLIN R [Concomitant]
  13. KAYEXALATE [Concomitant]
  14. ALLOPURINOL [Concomitant]
  15. VOLTAREN [Concomitant]
  16. CALONAL (PARACETAMOL) [Concomitant]
  17. ALBUMIN (HUMAN) [Concomitant]

REACTIONS (9)
  - BLOOD ALKALINE PHOSPHATASE INCREASED [None]
  - C-REACTIVE PROTEIN INCREASED [None]
  - ELECTROCARDIOGRAM T WAVE ABNORMAL [None]
  - NEUROPATHY PERIPHERAL [None]
  - NEUTROPENIA [None]
  - PYREXIA [None]
  - THROMBOCYTOPENIA [None]
  - TUMOUR LYSIS SYNDROME [None]
  - WHITE BLOOD CELL COUNT DECREASED [None]
